FAERS Safety Report 11839280 (Version 1)
Quarter: 2015Q4

REPORT INFORMATION
  Report Type: Spontaneous
  Country: US (occurrence: US)
  Receive Date: 20151216
  Receipt Date: 20151216
  Transmission Date: 20160305
  Serious: No
  Sender: FDA-Public Use
  Company Number: US-TEVA-583820USA

PATIENT
  Age: 60 Year
  Sex: Male
  Weight: 108.96 kg

DRUGS (2)
  1. OXYBUTYNIN 15MG [Suspect]
     Active Substance: OXYBUTYNIN
     Indication: HYPERHIDROSIS
     Route: 065
     Dates: start: 20150706, end: 20150710
  2. OXYBUTYNIN 5MG [Suspect]
     Active Substance: OXYBUTYNIN
     Indication: HYPERHIDROSIS
     Route: 065
     Dates: start: 201507, end: 201507

REACTIONS (4)
  - Paraesthesia [Unknown]
  - Oropharyngeal pain [Recovered/Resolved]
  - Throat irritation [Recovered/Resolved]
  - Off label use [Unknown]

NARRATIVE: CASE EVENT DATE: 201507
